FAERS Safety Report 5016052-4 (Version None)
Quarter: 2006Q2

REPORT INFORMATION
  Report Type: 
  Country: None (occurrence: None)
  Receive Date: 20060601
  Receipt Date: 20060529
  Transmission Date: 20061013
  Serious: Yes (Life-Threatening)
  Sender: FDA-Public Use
  Company Number: DK-BOEHRINGER INGELHEIM PHARMACEUTICALS, INC.-2006-SW-00240DB

PATIENT
  Sex: Female

DRUGS (5)
  1. SIFROL TAB. 0.7 MG [Suspect]
     Indication: PARKINSON'S DISEASE
     Dates: start: 20051005
  2. FOSAMAX [Concomitant]
  3. SELEGILIN [Concomitant]
  4. MADOPAR [Concomitant]
  5. CALCIUM D3 [Concomitant]

REACTIONS (2)
  - ACCIDENT [None]
  - SUDDEN ONSET OF SLEEP [None]
